FAERS Safety Report 21759620 (Version 4)
Quarter: 2024Q3

REPORT INFORMATION
  Report Type: Spontaneous
  Country: DE (occurrence: DE)
  Receive Date: 20221221
  Receipt Date: 20240924
  Transmission Date: 20241017
  Serious: Yes (Hospitalization, Other)
  Sender: ALKEM
  Company Number: DE-ALKEM LABORATORIES LIMITED-DE-ALKEM-2022-14143

PATIENT
  Sex: Male

DRUGS (9)
  1. IBUPROFEN [Suspect]
     Active Substance: IBUPROFEN
     Indication: Axial spondyloarthritis
     Dosage: 300 MILLIGRAM, ONCE WEEKLY (EVERY 1 WEEK)
     Route: 065
  2. IBUPROFEN [Suspect]
     Active Substance: IBUPROFEN
     Dosage: 200 MILLIGRAM
     Route: 065
  3. IBUPROFEN [Suspect]
     Active Substance: IBUPROFEN
     Dosage: 600 MILLIGRAM, QD (EVERY 1 DAY)
     Route: 065
     Dates: start: 20220815, end: 20220920
  4. IBUPROFEN [Suspect]
     Active Substance: IBUPROFEN
     Dosage: 600 MILLIGRAM, ONCE WEEKLY (EVERY 1 WEEK)
     Route: 065
     Dates: start: 20201015
  5. COSENTYX [Suspect]
     Active Substance: SECUKINUMAB
     Indication: Axial spondyloarthritis
     Dosage: 300 MILLIGRAM (SOLUTION FOR INJECTION) (INJECTION NOT OTHERWISE SPECIFIED)
     Route: 065
  6. COSENTYX [Suspect]
     Active Substance: SECUKINUMAB
     Dosage: 150 MILLIGRAM, EVERY 1 MONTH
     Route: 065
     Dates: start: 20180115, end: 20201215
  7. COSENTYX [Suspect]
     Active Substance: SECUKINUMAB
     Dosage: 150 MILLIGRAM, EVERY 5 WEEK
     Route: 065
     Dates: start: 20210215
  8. COSENTYX [Suspect]
     Active Substance: SECUKINUMAB
     Dosage: 150 MILLIGRAM, EVERY 1 MONTH (SOLUTION FOR INJECTION)
     Route: 065
     Dates: start: 20220915
  9. COSENTYX [Suspect]
     Active Substance: SECUKINUMAB
     Dosage: 150 MILLIGRAM, EVERY 4 WEEK
     Route: 065
     Dates: start: 20230921

REACTIONS (16)
  - Ligament sprain [Unknown]
  - Back pain [Unknown]
  - Arthralgia [Recovered/Resolved]
  - Musculoskeletal pain [Recovered/Resolved]
  - Musculoskeletal pain [Recovered/Resolved]
  - Musculoskeletal pain [Recovered/Resolved]
  - Axial spondyloarthritis [Recovered/Resolved]
  - Pelvic pain [Recovered/Resolved]
  - Spinal disorder [Recovered/Resolved]
  - Spinal osteoarthritis [Recovered/Resolved]
  - Colitis ulcerative [Unknown]
  - Condition aggravated [Recovered/Resolved]
  - Influenza [Unknown]
  - Arthralgia [Unknown]
  - Viral infection [Unknown]
  - Inappropriate schedule of product administration [Unknown]

NARRATIVE: CASE EVENT DATE: 20181121
